FAERS Safety Report 19399142 (Version 17)
Quarter: 2024Q1

REPORT INFORMATION
  Report Type: Report from Study
  Country: CO (occurrence: CO)
  Receive Date: 20210610
  Receipt Date: 20240318
  Transmission Date: 20240409
  Serious: Yes (Hospitalization, Other)
  Sender: FDA-Public Use
  Company Number: NVSC2021CO125157

PATIENT
  Sex: Female
  Weight: 55 kg

DRUGS (5)
  1. COSENTYX [Suspect]
     Active Substance: SECUKINUMAB
     Indication: Psoriasis
     Dosage: 300 MG, QMO
     Route: 058
  2. COSENTYX [Suspect]
     Active Substance: SECUKINUMAB
     Dosage: 300 MG, QMO
     Route: 058
     Dates: start: 20190228
  3. COSENTYX [Suspect]
     Active Substance: SECUKINUMAB
     Dosage: 300 MG, QMO
     Route: 058
     Dates: start: 20220101
  4. INSULIN NOS [Concomitant]
     Active Substance: INSULIN NOS
     Indication: Diabetes mellitus
     Dosage: UNK UNK, QD (STARTED 2 YEARS AGO)
     Route: 058
  5. ENALAPRIL [Concomitant]
     Active Substance: ENALAPRIL
     Indication: Hypertension
     Dosage: UNK UNK, Q12H  (STARTED 2 YEARS AGO)
     Route: 048

REACTIONS (10)
  - Mobility decreased [Unknown]
  - Thrombosis [Unknown]
  - Gait disturbance [Unknown]
  - Psoriasis [Not Recovered/Not Resolved]
  - Pruritus [Unknown]
  - Rash macular [Unknown]
  - Illness [Not Recovered/Not Resolved]
  - Dry skin [Unknown]
  - Condition aggravated [Unknown]
  - Product supply issue [Unknown]
